FAERS Safety Report 12917825 (Version 1)
Quarter: 2016Q4

REPORT INFORMATION
  Report Type: Report from Study
  Country: US (occurrence: US)
  Receive Date: 20161107
  Receipt Date: 20161107
  Transmission Date: 20170207
  Serious: Yes (Death, Other)
  Sender: FDA-Public Use
  Company Number: US-REGENERON PHARMACEUTICALS, INC.-2016-23522

PATIENT

DRUGS (1)
  1. EYLEA [Suspect]
     Active Substance: AFLIBERCEPT
     Indication: IRIDOSCHISIS
     Dosage: RECEIVED 11 DOSES
     Dates: start: 20121012, end: 20140130

REACTIONS (2)
  - Death [Fatal]
  - Off label use [Unknown]
